FAERS Safety Report 6287124-1 (Version None)
Quarter: 2009Q3

REPORT INFORMATION
  Report Type: 
  Country: None (occurrence: None)
  Receive Date: 20090728
  Receipt Date: 20090722
  Transmission Date: 20100115
  Serious: Yes (Other)
  Sender: FDA-Public Use
  Company Number: CA-ASTRAZENECA-2009UW21156

PATIENT
  Sex: Female

DRUGS (2)
  1. SEROQUEL [Suspect]
     Route: 048
     Dates: start: 20080101, end: 20090101
  2. METHADONE HCL [Concomitant]

REACTIONS (3)
  - DYSPNOEA [None]
  - NASAL CONGESTION [None]
  - RESPIRATORY TRACT CONGESTION [None]
